FAERS Safety Report 19793645 (Version 1)
Quarter: 2021Q3

REPORT INFORMATION
  Report Type: Report from Study
  Country: FR (occurrence: FR)
  Receive Date: 20210906
  Receipt Date: 20210906
  Transmission Date: 20211014
  Serious: Yes (Hospitalization)
  Sender: FDA-Public Use
  Company Number: FR-SERVIER-S21009747

PATIENT

DRUGS (8)
  1. TN UNSPECIFIED [Concomitant]
     Indication: ACUTE LYMPHOCYTIC LEUKAEMIA
     Dosage: UNK, D8 TO D28
     Route: 048
     Dates: start: 20201104, end: 20201122
  2. TN UNSPECIFIED [Concomitant]
     Indication: ACUTE LYMPHOCYTIC LEUKAEMIA
     Dosage: UNK, ON DAYS 9, 13, 18 AND 24
     Route: 037
     Dates: start: 20201104
  3. TN UNSPECIFIED [Concomitant]
     Indication: ACUTE LYMPHOCYTIC LEUKAEMIA
     Dosage: 12 MG, ON DAYS 9, 13, 18 AND 24
     Route: 037
     Dates: start: 20201104
  4. TN UNSPECIFIED [Concomitant]
     Indication: ACUTE LYMPHOCYTIC LEUKAEMIA
     Dosage: 15 MG, ON DAYS 9, 13, 18 AND 24
     Route: 037
     Dates: start: 20201104
  5. TN UNSPECIFIED [Concomitant]
     Indication: ACUTE LYMPHOCYTIC LEUKAEMIA
     Dosage: 30 MG, ON DAYS 8, 15, 22 AND 24
     Route: 037
     Dates: start: 20201103, end: 20201126
  6. TN UNSPECIFIED [Concomitant]
     Indication: ACUTE LYMPHOCYTIC LEUKAEMIA
     Dosage: 0.89 MG, ON DAYS 8, 15, 22 AND 29
     Route: 042
     Dates: start: 20201103, end: 20201126
  7. PEGASPARGASE [Suspect]
     Active Substance: PEGASPARGASE
     Indication: ACUTE LYMPHOCYTIC LEUKAEMIA
     Dosage: 1500 IU, OTHER, ON DAYS 12 AND 26
     Route: 042
     Dates: start: 20201106, end: 20201120
  8. TN UNSPECIFIED [Concomitant]
     Indication: ACUTE LYMPHOCYTIC LEUKAEMIA
     Dosage: 600 MG, ON DAY 9
     Route: 042
     Dates: start: 20201104

REACTIONS (1)
  - Sepsis [Recovered/Resolved]

NARRATIVE: CASE EVENT DATE: 20201122
